FAERS Safety Report 21843803 (Version 2)
Quarter: 2023Q2

REPORT INFORMATION
  Report Type: Report from Study
  Country: US (occurrence: US)
  Receive Date: 20230110
  Receipt Date: 20230412
  Transmission Date: 20230722
  Serious: No
  Sender: FDA-Public Use
  Company Number: US-ABBVIE-4229792

PATIENT
  Sex: Male

DRUGS (3)
  1. HUMIRA [Suspect]
     Active Substance: ADALIMUMAB
     Indication: Uveitis
     Dosage: FORM STRENGTH: 40 MG?CF
     Route: 058
  2. HUMIRA [Suspect]
     Active Substance: ADALIMUMAB
     Indication: Rheumatoid arthritis
     Route: 058
  3. Pfizer/BioNTech [Concomitant]
     Indication: COVID-19 immunisation
     Route: 030

REACTIONS (3)
  - Tooth disorder [Recovering/Resolving]
  - Eye swelling [Recovered/Resolved]
  - Tooth abscess [Recovering/Resolving]
